FAERS Safety Report 9092181 (Version 2)
Quarter: 2013Q2

REPORT INFORMATION
  Report Type: Spontaneous
  Country: FR (occurrence: FR)
  Receive Date: 20130131
  Receipt Date: 20130625
  Transmission Date: 20140414
  Serious: Yes (Other)
  Sender: FDA-Public Use
  Company Number: PHHY2013FR007547

PATIENT
  Sex: Female

DRUGS (3)
  1. COTAREG [Suspect]
     Indication: HYPERTENSION
     Dosage: 1 DF (160MG VALS/ 25MG HCT), QD
     Route: 048
     Dates: start: 2002
  2. METFORMIN [Concomitant]
     Indication: TYPE 2 DIABETES MELLITUS
     Dosage: 500 MG, TID
     Route: 048
     Dates: start: 201204
  3. FENOFIBRATE [Concomitant]
     Dosage: 160 MG, QD
     Dates: start: 2002

REACTIONS (4)
  - Breast cancer [Unknown]
  - Anaemia macrocytic [Not Recovered/Not Resolved]
  - Leukopenia [Not Recovered/Not Resolved]
  - Neutropenia [Not Recovered/Not Resolved]
